FAERS Safety Report 4528851-3 (Version None)
Quarter: 2004Q4

REPORT INFORMATION
  Report Type: 
  Country: None (occurrence: None)
  Receive Date: 20041215
  Receipt Date: 20041215
  Transmission Date: 20050328
  Serious: Yes (Hospitalization)
  Sender: FDA-Public Use
  Company Number: None

PATIENT
  Age: 61 Year
  Sex: Male
  Weight: 127 kg

DRUGS (9)
  1. ADVIL [Suspect]
     Indication: PAIN
     Dosage: 400 MG Q 4 HRS
  2. FUROSEMIDE [Suspect]
     Indication: HYPERTENSION
     Dosage: 120 MG QD CHRONIC
  3. COZAAR [Concomitant]
  4. CRESTOR [Concomitant]
  5. POTASSIUM [Concomitant]
  6. OMEGA [Concomitant]
  7. SAWPALMETTO [Concomitant]
  8. ASPRIN [Concomitant]
  9. MULTI-VITAMIN [Concomitant]

REACTIONS (7)
  - ASTHENIA [None]
  - DECREASED APPETITE [None]
  - DIALYSIS [None]
  - HAEMATOCRIT DECREASED [None]
  - HAEMOGLOBIN DECREASED [None]
  - LABORATORY TEST ABNORMAL [None]
  - VOMITING [None]
